FAERS Safety Report 9045593 (Version 1)
Quarter: 2013Q1

REPORT INFORMATION
  Report Type: Report from Study
  Country: US (occurrence: US)
  Receive Date: 20130131
  Receipt Date: 20130131
  Transmission Date: 20140127
  Serious: No
  Sender: FDA-Public Use
  Company Number: US-ABBOTT-12P-163-1010839-00

PATIENT
  Age: 60 Year
  Sex: Female

DRUGS (10)
  1. HUMIRA [Suspect]
     Indication: RHEUMATOID ARTHRITIS
  2. HUMIRA [Suspect]
     Dosage: WEEKLY EVERY SATURDAY
     Dates: start: 201211
  3. AMLODIPINE [Concomitant]
     Indication: BLOOD PRESSURE
  4. NAPROXEN [Concomitant]
     Indication: RHEUMATOID ARTHRITIS
  5. LISINOPRIL [Concomitant]
     Indication: BLOOD PRESSURE
  6. PRAVASTATIN [Concomitant]
     Indication: BLOOD CHOLESTEROL
  7. SERTRALINE [Concomitant]
     Indication: DEPRESSION
  8. LORAZEPAM [Concomitant]
     Indication: ANXIETY
  9. ZOLPIDEM [Concomitant]
     Indication: INSOMNIA
  10. KLONOPIN [Interacting]
     Indication: INSOMNIA

REACTIONS (3)
  - Drug ineffective [Not Recovered/Not Resolved]
  - Incorrect dose administered [Not Recovered/Not Resolved]
  - Device malfunction [Not Recovered/Not Resolved]
